FAERS Safety Report 10213042 (Version 2)
Quarter: 2017Q3

REPORT INFORMATION
  Report Type: Report from Study
  Country: CO (occurrence: CO)
  Receive Date: 20140603
  Receipt Date: 20170707
  Transmission Date: 20171127
  Serious: Yes (Other)
  Sender: FDA-Public Use
  Company Number: CO-ROCHE-1411785

PATIENT
  Sex: Male
  Weight: 95 kg

DRUGS (2)
  1. LUCENTIS [Suspect]
     Active Substance: RANIBIZUMAB
     Indication: RETINAL VEIN OCCLUSION
     Route: 050
  2. LUCENTIS [Suspect]
     Active Substance: RANIBIZUMAB
     Indication: GLAUCOMA

REACTIONS (4)
  - Eye infection [Unknown]
  - Drug ineffective [Unknown]
  - Blindness unilateral [Unknown]
  - Product use in unapproved indication [Unknown]
